FAERS Safety Report 5800405-8 (Version None)
Quarter: 2008Q3

REPORT INFORMATION
  Report Type: 
  Country: None (occurrence: None)
  Receive Date: 20080702
  Receipt Date: 20080702
  Transmission Date: 20090109
  Serious: No
  Sender: FDA-Public Use
  Company Number: None

PATIENT
  Sex: Male
  Weight: 6.41 kg

DRUGS (1)
  1. SYNAGIS [Suspect]
     Dosage: 15MG/KG MONTHLY IM
     Route: 030

REACTIONS (2)
  - DRUG INTERACTION [None]
  - UNEVALUABLE EVENT [None]
